FAERS Safety Report 20573186 (Version 1)
Quarter: 2022Q1

REPORT INFORMATION
  Report Type: Report from Study
  Country: IT (occurrence: IT)
  Receive Date: 20220309
  Receipt Date: 20220309
  Transmission Date: 20220423
  Serious: Yes (Death, Other)
  Sender: FDA-Public Use
  Company Number: IT-UCBSA-2022012049

PATIENT
  Sex: Female

DRUGS (1)
  1. LACOSAMIDE [Suspect]
     Active Substance: LACOSAMIDE
     Indication: Product used for unknown indication
     Dosage: 100MG

REACTIONS (2)
  - Death [Fatal]
  - Dementia Alzheimer^s type [Unknown]

NARRATIVE: CASE EVENT DATE: 20220227
